FAERS Safety Report 8311532-8 (Version None)
Quarter: 2012Q1

REPORT INFORMATION
  Report Type: 
  Country: None (occurrence: None)
  Receive Date: 20120315
  Receipt Date: 20110613
  Transmission Date: 20120608
  Serious: No
  Sender: FDA-Public Use
  Company Number: PHHY2011US53149

PATIENT
  Age: 28 Year
  Sex: Female

DRUGS (2)
  1. PERCOCET [Concomitant]
  2. GILENYA [Suspect]
     Indication: MULTIPLE SCLEROSIS
     Dosage: 0.5 MG, QD, ORAL
     Route: 048
     Dates: start: 20110517

REACTIONS (3)
  - NAUSEA [None]
  - HEART RATE DECREASED [None]
  - VOMITING [None]
